FAERS Safety Report 11995964 (Version 3)
Quarter: 2016Q1

REPORT INFORMATION
  Report Type: Spontaneous
  Country: NL (occurrence: NL)
  Receive Date: 20160203
  Receipt Date: 20160324
  Transmission Date: 20160526
  Serious: Yes (Life-Threatening, Hospitalization, Other)
  Sender: FDA-Public Use
  Company Number: PHHY2016NL011153

PATIENT
  Age: 3 Year
  Sex: Female
  Weight: 12.5 kg

DRUGS (4)
  1. AERIUS//DESLORATADINE [Concomitant]
     Indication: PRODUCT USED FOR UNKNOWN INDICATION
     Dosage: 2 KEER PER DAG 1 STUK(S)
     Route: 055
     Dates: start: 20150901
  2. SALBUTAMOL SANDOZ [Suspect]
     Active Substance: ALBUTEROL
     Indication: ASTHMA
     Route: 065
     Dates: start: 20150721
  3. SALBUTAMOL SANDOZ [Suspect]
     Active Substance: ALBUTEROL
     Dosage: 100 UG, UNK
     Route: 055
     Dates: start: 20160122, end: 20160122
  4. FLIXOTIDE DISKUS [Concomitant]
     Active Substance: FLUTICASONE PROPIONATE
     Indication: PRODUCT USED FOR UNKNOWN INDICATION
     Dosage: 2 KEER PER DAG 1 STUK(S)
     Route: 055
     Dates: start: 20150901

REACTIONS (15)
  - Stridor [Recovered/Resolved]
  - Anaphylactic shock [Recovered/Resolved]
  - Therapeutic response unexpected [Recovered/Resolved]
  - Lip swelling [Recovered/Resolved]
  - Cyanosis [Recovered/Resolved]
  - Dyspnoea [Recovered/Resolved]
  - Cough [Unknown]
  - Confusional state [Recovered/Resolved]
  - Dysphagia [Recovered/Resolved]
  - Drug effect incomplete [Recovered/Resolved]
  - Rash erythematous [Recovered/Resolved]
  - Feeling abnormal [Unknown]
  - Pallor [Recovered/Resolved]
  - Lip disorder [Recovered/Resolved]
  - Product substitution issue [Unknown]

NARRATIVE: CASE EVENT DATE: 201601
